FAERS Safety Report 5647661-7 (Version None)
Quarter: 2008Q1

REPORT INFORMATION
  Report Type: 
  Country: None (occurrence: None)
  Receive Date: 20080303
  Receipt Date: 20080220
  Transmission Date: 20080703
  Serious: Yes (Other)
  Sender: FDA-Public Use
  Company Number: US-PFIZER INC-2007108385

PATIENT
  Sex: Male
  Weight: 83 kg

DRUGS (2)
  1. LYRICA [Suspect]
     Indication: NEURALGIA
  2. OXYCONTIN [Concomitant]

REACTIONS (3)
  - INJECTION [None]
  - PAIN [None]
  - PRESYNCOPE [None]
